FAERS Safety Report 18449873 (Version 1)
Quarter: 2020Q4

REPORT INFORMATION
  Report Type: Spontaneous
  Country: US (occurrence: US)
  Receive Date: 20201030
  Receipt Date: 20201030
  Transmission Date: 20210114
  Serious: No
  Sender: FDA-Public Use
  Company Number: US-LUNDBECK-DKLU3022075

PATIENT
  Age: 12 Year
  Sex: Male
  Weight: 30 kg

DRUGS (7)
  1. SABRIL [Suspect]
     Active Substance: VIGABATRIN
     Indication: EPILEPSY
  2. ONFI [Concomitant]
     Active Substance: CLOBAZAM
     Indication: PRODUCT USED FOR UNKNOWN INDICATION
     Route: 065
  3. CLONIDINE HCL [Concomitant]
     Active Substance: CLONIDINE HYDROCHLORIDE
     Indication: PRODUCT USED FOR UNKNOWN INDICATION
     Route: 065
  4. SABRIL [Suspect]
     Active Substance: VIGABATRIN
     Indication: LENNOX-GASTAUT SYNDROME
     Route: 065
  5. BANZEL [Concomitant]
     Active Substance: RUFINAMIDE
     Indication: PRODUCT USED FOR UNKNOWN INDICATION
     Route: 065
  6. SABRIL [Suspect]
     Active Substance: VIGABATRIN
     Indication: STATUS EPILEPTICUS
  7. SABRIL [Suspect]
     Active Substance: VIGABATRIN
     Indication: INFANTILE SPASMS

REACTIONS (1)
  - Aggression [Unknown]
